FAERS Safety Report 18486588 (Version 1)
Quarter: 2020Q4

REPORT INFORMATION
  Report Type: Spontaneous
  Country: US (occurrence: US)
  Receive Date: 20201110
  Receipt Date: 20201110
  Transmission Date: 20210114
  Serious: No
  Sender: FDA-Public Use
  Company Number: US-PFIZER INC-2020432856

PATIENT
  Age: 76 Year
  Sex: Female
  Weight: 78.01 kg

DRUGS (1)
  1. LEVOTHYROXINE SODIUM. [Suspect]
     Active Substance: LEVOTHYROXINE SODIUM
     Dosage: UNK

REACTIONS (5)
  - Alopecia [Unknown]
  - Red blood cell count decreased [Unknown]
  - Thyroid function test abnormal [Unknown]
  - Asthenia [Unknown]
  - White blood cell count decreased [Unknown]
